FAERS Safety Report 8553644-X (Version None)
Quarter: 2012Q3

REPORT INFORMATION
  Report Type: 
  Country: None (occurrence: None)
  Receive Date: 20120725
  Receipt Date: 20120725
  Transmission Date: 20120928
  Serious: Yes (Other)
  Sender: FDA-Public Use
  Company Number: None

PATIENT
  Age: 62 Year
  Sex: Female

DRUGS (1)
  1. JAKAFI [Suspect]
     Indication: MYELOFIBROSIS
     Dosage: 20MG BID PO
     Route: 048
     Dates: start: 20120427, end: 20120719

REACTIONS (2)
  - AGEUSIA [None]
  - DECREASED APPETITE [None]
